FAERS Safety Report 24030113 (Version 2)
Quarter: 2025Q2

REPORT INFORMATION
  Report Type: Spontaneous
  Country: CZ (occurrence: CZ)
  Receive Date: 20240628
  Receipt Date: 20250410
  Transmission Date: 20250716
  Serious: Yes (Other)
  Sender: MYLAN
  Company Number: CZ-002147023-NVSC2024CZ125630

PATIENT
  Sex: Male

DRUGS (52)
  1. IMATINIB [Suspect]
     Active Substance: IMATINIB
     Indication: Chronic myeloid leukaemia
     Dosage: 200 MILLIGRAM, BID, 200 MG, BID (1-0-1)
     Route: 065
     Dates: start: 201901, end: 201907
  2. IMATINIB [Suspect]
     Active Substance: IMATINIB
     Dosage: 200 MILLIGRAM, BID, 200 MG, BID (1-0-1)
     Dates: start: 201901, end: 201907
  3. IMATINIB [Suspect]
     Active Substance: IMATINIB
     Dosage: 200 MILLIGRAM, BID, 200 MG, BID (1-0-1)
     Dates: start: 201901, end: 201907
  4. IMATINIB [Suspect]
     Active Substance: IMATINIB
     Dosage: 200 MILLIGRAM, BID, 200 MG, BID (1-0-1)
     Route: 065
     Dates: start: 201901, end: 201907
  5. IMATINIB [Suspect]
     Active Substance: IMATINIB
     Dosage: 400 MG, QD
     Dates: start: 20190114
  6. IMATINIB [Suspect]
     Active Substance: IMATINIB
     Dosage: 400 MG, QD
     Route: 065
     Dates: start: 20190114
  7. IMATINIB [Suspect]
     Active Substance: IMATINIB
     Dosage: 400 MG, QD
     Dates: start: 20190114
  8. IMATINIB [Suspect]
     Active Substance: IMATINIB
     Dosage: 400 MG, QD
     Route: 065
     Dates: start: 20190114
  9. IMATINIB [Suspect]
     Active Substance: IMATINIB
     Dosage: 100 MILLIGRAM, BID, 100 MG, BID (1-0-1)
     Route: 065
     Dates: start: 20190128
  10. IMATINIB [Suspect]
     Active Substance: IMATINIB
     Dosage: 100 MILLIGRAM, BID, 100 MG, BID (1-0-1)
     Dates: start: 20190128
  11. IMATINIB [Suspect]
     Active Substance: IMATINIB
     Dosage: 100 MILLIGRAM, BID, 100 MG, BID (1-0-1)
     Dates: start: 20190128
  12. IMATINIB [Suspect]
     Active Substance: IMATINIB
     Dosage: 100 MILLIGRAM, BID, 100 MG, BID (1-0-1)
     Route: 065
     Dates: start: 20190128
  13. IMATINIB [Suspect]
     Active Substance: IMATINIB
     Dosage: 300 MILLIGRAM, TID, 300 MG, TID (2-0-1)
     Route: 065
     Dates: start: 201907, end: 201908
  14. IMATINIB [Suspect]
     Active Substance: IMATINIB
     Dosage: 300 MILLIGRAM, TID, 300 MG, TID (2-0-1)
     Dates: start: 201907, end: 201908
  15. IMATINIB [Suspect]
     Active Substance: IMATINIB
     Dosage: 300 MILLIGRAM, TID, 300 MG, TID (2-0-1)
     Dates: start: 201907, end: 201908
  16. IMATINIB [Suspect]
     Active Substance: IMATINIB
     Dosage: 300 MILLIGRAM, TID, 300 MG, TID (2-0-1)
     Route: 065
     Dates: start: 201907, end: 201908
  17. IMATINIB [Suspect]
     Active Substance: IMATINIB
     Dosage: 400 MILLIGRAM, QID, 400 MG, QID (4-0-0)
     Route: 065
     Dates: start: 201908, end: 20200113
  18. IMATINIB [Suspect]
     Active Substance: IMATINIB
     Dosage: 400 MILLIGRAM, QID, 400 MG, QID (4-0-0)
     Dates: start: 201908, end: 20200113
  19. IMATINIB [Suspect]
     Active Substance: IMATINIB
     Dosage: 400 MILLIGRAM, QID, 400 MG, QID (4-0-0)
     Dates: start: 201908, end: 20200113
  20. IMATINIB [Suspect]
     Active Substance: IMATINIB
     Dosage: 400 MILLIGRAM, QID, 400 MG, QID (4-0-0)
     Route: 065
     Dates: start: 201908, end: 20200113
  21. IMATINIB [Suspect]
     Active Substance: IMATINIB
     Dosage: 200 MILLIGRAM, QD
     Route: 065
     Dates: start: 2019
  22. IMATINIB [Suspect]
     Active Substance: IMATINIB
     Dosage: 200 MILLIGRAM, QD
     Route: 065
     Dates: start: 2019
  23. IMATINIB [Suspect]
     Active Substance: IMATINIB
     Dosage: 200 MILLIGRAM, QD
     Dates: start: 2019
  24. IMATINIB [Suspect]
     Active Substance: IMATINIB
     Dosage: 200 MILLIGRAM, QD
     Dates: start: 2019
  25. IMATINIB [Suspect]
     Active Substance: IMATINIB
     Dosage: 400 MILLIGRAM, QD
     Dates: start: 2019, end: 202001
  26. IMATINIB [Suspect]
     Active Substance: IMATINIB
     Dosage: 400 MILLIGRAM, QD
     Route: 065
     Dates: start: 2019, end: 202001
  27. IMATINIB [Suspect]
     Active Substance: IMATINIB
     Dosage: 400 MILLIGRAM, QD
     Route: 065
     Dates: start: 2019, end: 202001
  28. IMATINIB [Suspect]
     Active Substance: IMATINIB
     Dosage: 400 MILLIGRAM, QD
     Dates: start: 2019, end: 202001
  29. IMATINIB [Suspect]
     Active Substance: IMATINIB
     Dosage: 300 MILLIGRAM, QD
     Dates: start: 2019
  30. IMATINIB [Suspect]
     Active Substance: IMATINIB
     Dosage: 300 MILLIGRAM, QD
     Dates: start: 2019
  31. IMATINIB [Suspect]
     Active Substance: IMATINIB
     Dosage: 300 MILLIGRAM, QD
     Route: 065
     Dates: start: 2019
  32. IMATINIB [Suspect]
     Active Substance: IMATINIB
     Dosage: 300 MILLIGRAM, QD
     Route: 065
     Dates: start: 2019
  33. IBUPROFEN [Concomitant]
     Active Substance: IBUPROFEN
     Indication: Product used for unknown indication
  34. IBUPROFEN [Concomitant]
     Active Substance: IBUPROFEN
     Route: 065
  35. IBUPROFEN [Concomitant]
     Active Substance: IBUPROFEN
     Route: 065
  36. IBUPROFEN [Concomitant]
     Active Substance: IBUPROFEN
  37. Purinol [Concomitant]
     Indication: Product used for unknown indication
  38. Purinol [Concomitant]
     Route: 065
  39. Purinol [Concomitant]
     Route: 065
  40. Purinol [Concomitant]
  41. CITALOPRAM [Concomitant]
     Active Substance: CITALOPRAM
     Indication: Product used for unknown indication
  42. CITALOPRAM [Concomitant]
     Active Substance: CITALOPRAM
     Route: 065
  43. CITALOPRAM [Concomitant]
     Active Substance: CITALOPRAM
     Route: 065
  44. CITALOPRAM [Concomitant]
     Active Substance: CITALOPRAM
  45. BROMAZEPAM [Concomitant]
     Active Substance: BROMAZEPAM
     Indication: Product used for unknown indication
  46. BROMAZEPAM [Concomitant]
     Active Substance: BROMAZEPAM
     Route: 065
  47. BROMAZEPAM [Concomitant]
     Active Substance: BROMAZEPAM
     Route: 065
  48. BROMAZEPAM [Concomitant]
     Active Substance: BROMAZEPAM
  49. IMODIUM [Concomitant]
     Active Substance: LOPERAMIDE HYDROCHLORIDE
     Indication: Product used for unknown indication
  50. IMODIUM [Concomitant]
     Active Substance: LOPERAMIDE HYDROCHLORIDE
     Route: 065
  51. IMODIUM [Concomitant]
     Active Substance: LOPERAMIDE HYDROCHLORIDE
     Route: 065
  52. IMODIUM [Concomitant]
     Active Substance: LOPERAMIDE HYDROCHLORIDE

REACTIONS (31)
  - Sensory loss [Not Recovered/Not Resolved]
  - Polyneuropathy [Not Recovered/Not Resolved]
  - Paraesthesia [Not Recovered/Not Resolved]
  - Muscular weakness [Not Recovered/Not Resolved]
  - Drug ineffective [Unknown]
  - Therapeutic product effect incomplete [Recovering/Resolving]
  - Philadelphia chromosome positive [Recovering/Resolving]
  - Motor dysfunction [Unknown]
  - Auditory disorder [Unknown]
  - Accommodation disorder [Unknown]
  - Visual field defect [Unknown]
  - Gait inability [Not Recovered/Not Resolved]
  - Groin pain [Not Recovered/Not Resolved]
  - Loss of personal independence in daily activities [Unknown]
  - Asthenopia [Unknown]
  - Fall [Unknown]
  - Back pain [Unknown]
  - Pelvic pain [Not Recovered/Not Resolved]
  - Fatigue [Not Recovered/Not Resolved]
  - Diarrhoea [Not Recovered/Not Resolved]
  - Tinnitus [Not Recovered/Not Resolved]
  - Somnolence [Not Recovered/Not Resolved]
  - Eye irritation [Unknown]
  - Weight decreased [Unknown]
  - Bone pain [Not Recovered/Not Resolved]
  - Lacrimation increased [Unknown]
  - Insomnia [Unknown]
  - Nausea [Not Recovered/Not Resolved]
  - Vision blurred [Unknown]
  - Arthralgia [Not Recovered/Not Resolved]
  - Hypoaesthesia [Unknown]

NARRATIVE: CASE EVENT DATE: 20190101
